FAERS Safety Report 8649080 (Version 2)
Quarter: 2012Q4

REPORT INFORMATION
  Report Type: 
  Country: US (occurrence: US)
  Receive Date: 20120704
  Receipt Date: 20120904
  Transmission Date: 20130627
  Serious: Yes (Hospitalization)
  Sender: FDA-Public Use
  Company Number: US-BAYER-2012-007703

PATIENT
  Age: 61 Year
  Sex: Male
  Weight: 87.08 kg

DRUGS (12)
  1. AFLIBERCEPT [Suspect]
     Indication: DIABETIC RETINAL OEDEMA
     Dosage: 1 dose of MASKED VEGF Trap-Eye or laser
     Route: 031
     Dates: start: 20111216
  2. ACETYLSALICYLIC ACID({=100 MG) [Suspect]
     Indication: PRODUCT USED FOR UNKNOWN INDICATION
     Dosage: 81 mg, QD
     Route: 048
     Dates: start: 2006
  3. DILTIAZEM [Concomitant]
     Indication: HYPERTENSION
     Dosage: 120 mg, BID
     Route: 048
     Dates: start: 201105
  4. NOVOLIN N [Concomitant]
     Indication: DIABETES MELLITUS
     Dosage: 40 iu, QD
     Route: 058
  5. HYDRALAZINE [Concomitant]
     Indication: HYPERTENSION
     Dosage: 50 mg, BID
     Route: 048
     Dates: start: 201105
  6. FUROSEMIDE [Concomitant]
     Indication: DIURETIC THERAPY
     Dosage: 20 mg, BID
     Route: 048
     Dates: start: 2010
  7. LISINOPRIL [Concomitant]
     Indication: HYPERTENSION
     Dosage: 40 mg, BID
     Route: 048
     Dates: start: 2008
  8. LIPITOR [Concomitant]
     Indication: BLOOD CHOLESTEROL INCREASED
     Dosage: 40 mg, QD
     Route: 048
     Dates: start: 20111209
  9. FLOMAX (MORNIFLUMATE) [Concomitant]
     Indication: PROSTATOMEGALY
     Dosage: 0.4 mg, QD
     Route: 048
  10. FERROUS SULFATE [Concomitant]
     Indication: ANAEMIA
     Dosage: 65 mg, QD
     Route: 048
     Dates: start: 201105
  11. VITAMIN D [Concomitant]
     Indication: PRODUCT USED FOR UNKNOWN INDICATION
     Dosage: 166.666 iu, Q1MON
     Route: 048
     Dates: start: 201108
  12. OMEGA 3 FISH OIL [Concomitant]
     Indication: PRODUCT USED FOR UNKNOWN INDICATION
     Dosage: 1000 mg, QD
     Route: 048
     Dates: start: 201012

REACTIONS (3)
  - Anaemia [Recovered/Resolved]
  - Ulcer haemorrhage [Recovered/Resolved]
  - Gastrooesophageal reflux disease [Recovered/Resolved]
